FAERS Safety Report 7459740-2 (Version None)
Quarter: 2011Q2

REPORT INFORMATION
  Report Type: 
  Country: None (occurrence: None)
  Receive Date: 20110505
  Receipt Date: 20110420
  Transmission Date: 20111010
  Serious: Yes (Other)
  Sender: FDA-Public Use
  Company Number: BR-ASTRAZENECA-2011SE25000

PATIENT
  Age: 64 Year
  Sex: Female
  Weight: 96 kg

DRUGS (7)
  1. NEXIUM [Suspect]
     Route: 048
     Dates: start: 20110401
  2. NEXIUM [Suspect]
     Indication: GASTRITIS HAEMORRHAGIC
     Route: 048
     Dates: start: 20110101, end: 20110401
  3. SELOZOK [Suspect]
     Indication: HYPERTENSION
     Route: 048
     Dates: start: 20080101
  4. CORUS [Concomitant]
     Indication: HYPERTENSION
     Route: 048
     Dates: start: 20080101
  5. CORDROFELX [Concomitant]
     Indication: OSTEOARTHRITIS
     Route: 048
     Dates: start: 20080101
  6. DICLOFENAC [Suspect]
     Indication: OSTEOARTHRITIS
     Route: 048
     Dates: start: 20110101
  7. MELOXICAN [Concomitant]
     Indication: OSTEOARTHRITIS
     Route: 048
     Dates: start: 20100101

REACTIONS (9)
  - BLOOD PRESSURE INCREASED [None]
  - INSOMNIA [None]
  - DEPRESSION [None]
  - DIABETES MELLITUS [None]
  - INCORRECT DRUG ADMINISTRATION DURATION [None]
  - HAEMATOCHEZIA [None]
  - GASTRITIS HAEMORRHAGIC [None]
  - HEART RATE INCREASED [None]
  - NAUSEA [None]
